FAERS Safety Report 20724559 (Version 1)
Quarter: 2022Q2

REPORT INFORMATION
  Report Type: Spontaneous
  Country: US (occurrence: US)
  Receive Date: 20220419
  Receipt Date: 20220419
  Transmission Date: 20220720
  Serious: Yes (Other)
  Sender: FDA-Public Use
  Company Number: US-PFIZER INC-202200581604

PATIENT
  Age: 68 Year
  Sex: Female

DRUGS (1)
  1. IBRANCE [Suspect]
     Active Substance: PALBOCICLIB
     Dosage: UNK
     Dates: start: 20210603

REACTIONS (4)
  - Cataract [Unknown]
  - Appetite disorder [Recovering/Resolving]
  - Diarrhoea [Unknown]
  - Eating disorder [Unknown]

NARRATIVE: CASE EVENT DATE: 20210101
